FAERS Safety Report 21270482 (Version 1)
Quarter: 2022Q3

REPORT INFORMATION
  Report Type: Spontaneous
  Country: US (occurrence: US)
  Receive Date: 20220830
  Receipt Date: 20220830
  Transmission Date: 20221027
  Serious: No
  Sender: FDA-Public Use
  Company Number: US-PFIZER INC-PV202200025435

PATIENT
  Age: 64 Year
  Sex: Female

DRUGS (2)
  1. IBRANCE [Suspect]
     Active Substance: PALBOCICLIB
     Dosage: UNK
     Dates: start: 20220620
  2. IBRANCE [Suspect]
     Active Substance: PALBOCICLIB
     Dosage: UNK
     Dates: start: 20220715

REACTIONS (11)
  - Product dose omission in error [Unknown]
  - Diarrhoea [Unknown]
  - Gait disturbance [Unknown]
  - Asthenia [Unknown]
  - Pallor [Unknown]
  - Tremor [Unknown]
  - Memory impairment [Unknown]
  - Speech disorder [Unknown]
  - Balance disorder [Unknown]
  - Decreased appetite [Unknown]
  - Weight decreased [Unknown]

NARRATIVE: CASE EVENT DATE: 20220101
